FAERS Safety Report 6588114-1 (Version None)
Quarter: 2010Q1

REPORT INFORMATION
  Report Type: 
  Country: None (occurrence: None)
  Receive Date: 20100202
  Receipt Date: 20100202
  Transmission Date: 20100710
  Serious: No
  Sender: FDA-Public Use
  Company Number: 2009-00588

PATIENT
  Age: 75 Year
  Sex: Male
  Weight: 79.3795 kg

DRUGS (4)
  1. ZICAM COLD REMEDY [Suspect]
     Dosage: YEARS AGO-UNK STOP DATE
  2. ZICAM COUGH MAX COUGH [Suspect]
     Dosage: YEARS AGO-UNK STOP DATE
  3. ZICAM COLD REMEDY [Suspect]
     Dosage: YEARS AGO-UNK STOP DATE
     Route: 048
  4. ZICAM ALLERGY RELIEF [Suspect]
     Dosage: YEARS AGO-UNK STOP DATE
     Route: 045

REACTIONS (1)
  - ANOSMIA [None]
